FAERS Safety Report 8557516-6 (Version None)
Quarter: 2012Q3

REPORT INFORMATION
  Report Type: 
  Country: None (occurrence: None)
  Receive Date: 20120801
  Receipt Date: 20120725
  Transmission Date: 20120928
  Serious: Yes (Death, Other)
  Sender: FDA-Public Use
  Company Number: US-EISAI INC-E3810-05675-SOL-US

PATIENT
  Sex: Male

DRUGS (1)
  1. ACIPHEX [Suspect]
     Dosage: UNKNOWN
     Route: 048

REACTIONS (2)
  - CARDIAC ARREST [None]
  - LUNG NEOPLASM MALIGNANT [None]
